FAERS Safety Report 5130419-5 (Version None)
Quarter: 2006Q4

REPORT INFORMATION
  Report Type: 
  Country: None (occurrence: None)
  Receive Date: 20061013
  Receipt Date: 20060928
  Transmission Date: 20070319
  Serious: Yes (Other)
  Sender: FDA-Public Use
  Company Number: US-2006-029025

PATIENT
  Age: 83 Year
  Sex: Female

DRUGS (1)
  1. MAGNEVIST [Suspect]
     Indication: NUCLEAR MAGNETIC RESONANCE IMAGING
     Dosage: 14 ML, 1 DOSE,
     Dates: start: 20060915, end: 20060915

REACTIONS (3)
  - CHOKING SENSATION [None]
  - CONTRAST MEDIA REACTION [None]
  - RESPIRATORY DISTRESS [None]
